FAERS Safety Report 9195084 (Version 1)
Quarter: 2013Q1

REPORT INFORMATION
  Report Type: Spontaneous
  Country: US (occurrence: US)
  Receive Date: 20130328
  Receipt Date: 20130328
  Transmission Date: 20140127
  Serious: No
  Sender: FDA-Public Use
  Company Number: US-ALLERGAN-1214137US

PATIENT
  Age: 50 Year
  Sex: Female

DRUGS (8)
  1. LATISSE 0.03% [Suspect]
     Indication: GROWTH OF EYELASHES
     Dosage: 2 GTT, QHS
     Route: 061
  2. LATISSE 0.03% [Suspect]
     Dosage: UNK, QHS
     Route: 061
  3. LATISSE 0.03% [Suspect]
     Dosage: UNK UNK, QAM
     Route: 061
  4. ESTRADIAL [Concomitant]
     Indication: HORMONE THERAPY
     Dosage: 0.5 MG, QD
     Route: 048
  5. ASPIRIN [Concomitant]
     Indication: PRODUCT USED FOR UNKNOWN INDICATION
     Dosage: 81 MG, QD
     Route: 048
  6. DAILY VITAMINS [Concomitant]
     Indication: SUPPLEMENTATION THERAPY
     Dosage: UNK
     Route: 048
  7. FLAX OIL [Concomitant]
     Indication: SUPPLEMENTATION THERAPY
     Dosage: UNK
     Route: 048
  8. UNSPECIFIED EYE DROPS [Concomitant]
     Indication: DRY EYE
     Dosage: UNK, QAM
     Route: 047

REACTIONS (4)
  - Inappropriate schedule of drug administration [Unknown]
  - Drug ineffective [Unknown]
  - Blepharal pigmentation [Recovered/Resolved]
  - Scleral hyperaemia [Recovered/Resolved]
